FAERS Safety Report 21642565 (Version 1)
Quarter: 2022Q4

REPORT INFORMATION
  Report Type: Spontaneous
  Country: FR (occurrence: FR)
  Receive Date: 20221125
  Receipt Date: 20221125
  Transmission Date: 20230113
  Serious: Yes (Other)
  Sender: FDA-Public Use
  Company Number: None

PATIENT
  Age: 78 Year
  Sex: Male
  Weight: 106 kg

DRUGS (1)
  1. LIPTRUZET [Suspect]
     Active Substance: ATORVASTATIN CALCIUM\EZETIMIBE
     Indication: Hypercholesterolaemia
     Dosage: LC (FORMULATION REPORTED AS FILM COATED TABLET)
     Route: 048

REACTIONS (2)
  - Hepatic steatosis [Not Recovered/Not Resolved]
  - Cell death [Not Recovered/Not Resolved]

NARRATIVE: CASE EVENT DATE: 20220308
